FAERS Safety Report 7174614-2 (Version None)
Quarter: 2010Q4

REPORT INFORMATION
  Report Type: 
  Country: None (occurrence: None)
  Receive Date: 20101202
  Receipt Date: 20101115
  Transmission Date: 20110411
  Serious: Yes (Hospitalization)
  Sender: FDA-Public Use
  Company Number: BAYER CASE ID: 201015234BYL

PATIENT
  Age: 77 Year
  Sex: Female

DRUGS (15)
  1. NEXAVAR [Suspect]
     Indication: HEPATIC NEOPLASM MALIGNANT
     Dosage: 800MG AND 400MG ORAL
     Route: 048
     Dates: start: 20100730, end: 20100809
  2. NEXAVAR [Suspect]
     Indication: HEPATIC NEOPLASM MALIGNANT
     Dosage: 800MG AND 400MG ORAL
     Route: 048
     Dates: start: 20100810, end: 20100930
  3. ALEVIATIN (PHENYTOIN) [Suspect]
     Indication: CONVULSION
     Dosage: 10MG ORAL
     Route: 048
     Dates: start: 19990101, end: 20101001
  4. BLOPRESS (CANDESARTAN CILEXETIL) [Suspect]
     Indication: PRODUCT USED FOR UNKNOWN INDICATION
     Dosage: 4 MG ORAL
     Route: 048
     Dates: start: 20100730, end: 20101001
  5. MUCOSTA (REBAMIPIDE) [Concomitant]
  6. LANSOPRAZOLE [Concomitant]
  7. BUP-4 (PROPIVERINE HYDROCHLORIDE) [Concomitant]
  8. METHYCOBAL (MECOBALAMIN) [Concomitant]
  9. LIVACT [Concomitant]
  10. PYDOXAL (PYRIDOXAL PHOSPHATE) [Concomitant]
  11. UREPEARL (UREA) [Concomitant]
  12. RINDERON-VG [Concomitant]
  13. FLUITRAN (TRICHLORMETHIAZIDE) [Concomitant]
  14. ZYRTEC [Concomitant]
  15. MYSER (DIFLUPREDNATE) [Concomitant]

REACTIONS (3)
  - CONFUSIONAL STATE [None]
  - DECREASED APPETITE [None]
  - DRUG TOXICITY [None]
